FAERS Safety Report 5707938-3 (Version None)
Quarter: 2008Q2

REPORT INFORMATION
  Report Type: 
  Country: None (occurrence: None)
  Receive Date: 20080417
  Receipt Date: 20080408
  Transmission Date: 20081010
  Serious: Yes (Other)
  Sender: FDA-Public Use
  Company Number: PHHY2008BR05215

PATIENT
  Sex: Female

DRUGS (1)
  1. ACLASTA [Suspect]
     Dates: start: 20080311

REACTIONS (3)
  - HYPOCALCAEMIA [None]
  - MEDICATION ERROR [None]
  - MUSCLE CONTRACTIONS INVOLUNTARY [None]
